FAERS Safety Report 10403696 (Version 1)
Quarter: 2014Q3

REPORT INFORMATION
  Report Type: Spontaneous
  Country: GB (occurrence: GB)
  Receive Date: 20140822
  Receipt Date: 20140822
  Transmission Date: 20150326
  Serious: Yes (Other)
  Sender: FDA-Public Use
  Company Number: GB-BAUSCH-BL-2014-003794

PATIENT
  Age: 36 Year
  Sex: Female
  Weight: 95 kg

DRUGS (4)
  1. GLYCEROL/LECITHIN/GLYCINE MAX SEED OIL [Suspect]
     Active Substance: EGG PHOSPHOLIPIDS\GLYCERIN\SOYBEAN OIL
     Indication: IMMUNE SYSTEM DISORDER
  2. REPEVAX [Suspect]
     Active Substance: DIPHTHERIA AND TETANUS TOXOIDS AND ACELLULAR PERTUSSIS ADSORBED AND INACTIVATED POLIOVIRUS VACCINE
     Indication: IMMUNISATION
     Dates: start: 20140219, end: 20140219
  3. PREDNISOLONE. [Suspect]
     Active Substance: PREDNISOLONE
     Indication: IMMUNE SYSTEM DISORDER
  4. CYCLOGEST [Suspect]
     Active Substance: PROGESTERONE
     Indication: IMMUNE SYSTEM DISORDER

REACTIONS (5)
  - Exposure during pregnancy [Unknown]
  - Postpartum haemorrhage [Unknown]
  - Prolonged labour [Unknown]
  - Caesarean section [Unknown]
  - Immune system disorder [None]
